FAERS Safety Report 6112364-1 (Version None)
Quarter: 2009Q1

REPORT INFORMATION
  Report Type: 
  Country: None (occurrence: None)
  Receive Date: 20090311
  Receipt Date: 20090311
  Transmission Date: 20090719
  Serious: Yes (Disabling)
  Sender: FDA-Public Use
  Company Number: None

PATIENT
  Age: 71 Year
  Sex: Female
  Weight: 65.7716 kg

DRUGS (1)
  1. CIPROFLOXACIN HCL [Suspect]
     Indication: URINARY TRACT INFECTION
     Dosage: 1-250 MG TABLET 2X A DAY FOR 10 DAYS BY MOUTH
     Dates: start: 20080424, end: 20080501

REACTIONS (8)
  - ARTHRALGIA [None]
  - ERYTHEMA [None]
  - GAIT DISTURBANCE [None]
  - HAEMORRHAGE [None]
  - LIMB INJURY [None]
  - PAIN IN EXTREMITY [None]
  - SKIN DISCOLOURATION [None]
  - WALKING AID USER [None]
